FAERS Safety Report 8329453-3 (Version None)
Quarter: 2012Q2

REPORT INFORMATION
  Report Type: 
  Country: None (occurrence: None)
  Receive Date: 20120502
  Receipt Date: 20120423
  Transmission Date: 20120825
  Serious: Yes (Hospitalization, Other)
  Sender: FDA-Public Use
  Company Number: JP-VERTEX PHARMACEUTICALS INC.-AE-2012-002423

PATIENT
  Age: 62 Year
  Sex: Male

DRUGS (12)
  1. REBETOL [Concomitant]
     Route: 048
     Dates: start: 20120310, end: 20120316
  2. GASMOTIN [Concomitant]
     Route: 048
     Dates: start: 20120213
  3. REBETOL [Concomitant]
     Route: 048
     Dates: start: 20120326, end: 20120327
  4. TELAVIC (TELAPREVIR) [Suspect]
     Indication: HEPATITIS C
     Route: 048
     Dates: start: 20120210, end: 20120302
  5. ALLOPURINOL [Concomitant]
     Route: 048
     Dates: start: 20120213
  6. PEG-INTRON [Concomitant]
     Indication: HEPATITIS C
     Route: 058
     Dates: start: 20120210
  7. TELAVIC (TELAPREVIR) [Suspect]
     Route: 048
     Dates: start: 20120303, end: 20120316
  8. REBETOL [Concomitant]
     Indication: HEPATITIS C
     Route: 048
     Dates: start: 20120210, end: 20120309
  9. CLOBETASOL PROPIONATE [Concomitant]
     Route: 061
     Dates: start: 20120217
  10. BETAMAC [Concomitant]
     Route: 048
     Dates: start: 20120215
  11. RIKKUNSHI-TO [Concomitant]
     Route: 048
     Dates: start: 20120217
  12. SEDEKOPAN [Concomitant]
     Route: 048
     Dates: start: 20120306, end: 20120316

REACTIONS (6)
  - ANAEMIA [None]
  - RASH [None]
  - BLOOD URIC ACID INCREASED [None]
  - DUODENAL ULCER [None]
  - BLOOD CREATININE INCREASED [None]
  - DEPRESSIVE SYMPTOM [None]
